FAERS Safety Report 5281759-0 (Version None)
Quarter: 2007Q1

REPORT INFORMATION
  Report Type: 
  Country: None (occurrence: None)
  Receive Date: 20070330
  Receipt Date: 20070323
  Transmission Date: 20070707
  Serious: Yes (Other)
  Sender: FDA-Public Use
  Company Number: BE-GLAXOSMITHKLINE-B0463179A

PATIENT
  Age: 62 Year
  Sex: Female
  Weight: 81.5 kg

DRUGS (2)
  1. AVANDIA [Suspect]
     Route: 048
  2. DIAMICRON [Suspect]
     Route: 065
     Dates: start: 20040213

REACTIONS (4)
  - BLOOD GLUCOSE INCREASED [None]
  - GLYCOSYLATED HAEMOGLOBIN DECREASED [None]
  - RED BLOOD CELL COUNT INCREASED [None]
  - THROMBOCYTOPENIA [None]
